FAERS Safety Report 5310682-8 (Version None)
Quarter: 2007Q2

REPORT INFORMATION
  Report Type: 
  Country: None (occurrence: None)
  Receive Date: 20070428
  Receipt Date: 20070417
  Transmission Date: 20071010
  Serious: Yes (Hospitalization, Other)
  Sender: FDA-Public Use
  Company Number: US-PFIZER INC-2007031147

PATIENT
  Sex: Female
  Weight: 47.6 kg

DRUGS (9)
  1. NEURONTIN [Suspect]
     Indication: CENTRAL PAIN SYNDROME
     Dates: start: 19970101, end: 20061201
  2. LYRICA [Suspect]
     Indication: CENTRAL PAIN SYNDROME
  3. VALSARTAN [Concomitant]
  4. LIPITOR [Concomitant]
  5. PROTONIX [Concomitant]
  6. VITAMIN B6 [Concomitant]
  7. VITAMIN B-12 [Concomitant]
  8. FOLIC ACID [Concomitant]
  9. CALCIUM CHLORIDE [Concomitant]

REACTIONS (6)
  - BLOOD PRESSURE INCREASED [None]
  - CEREBROVASCULAR ACCIDENT [None]
  - DRUG INEFFECTIVE [None]
  - FEELING HOT [None]
  - HEMIPARESIS [None]
  - HYPERSENSITIVITY [None]
